FAERS Safety Report 9126008 (Version 2)
Quarter: 2013Q2

REPORT INFORMATION
  Report Type: Spontaneous
  Country: FR (occurrence: FR)
  Receive Date: 20130228
  Receipt Date: 20130402
  Transmission Date: 20140414
  Serious: Yes (Hospitalization)
  Sender: FDA-Public Use
  Company Number: FR-GE HEALTHCARE MEDICAL DIAGNOSTICS-VISP-NO-1012S-0570

PATIENT
  Age: 30 Year
  Sex: Female

DRUGS (12)
  1. VISIPAQUE [Suspect]
     Indication: BRAIN NEOPLASM MALIGNANT
     Dosage: DOSE NOT REPORTED
     Route: 065
     Dates: start: 20100921, end: 20100921
  2. VISIPAQUE [Suspect]
     Indication: MENINGITIS ENTEROCOCCAL
  3. VISIPAQUE [Suspect]
     Indication: DIAGNOSTIC PROCEDURE
  4. CEFOTAXIME SODIUM [Suspect]
  5. FOSFOMYCIN [Suspect]
     Route: 048
     Dates: start: 20100901, end: 20100903
  6. FOSFOMYCIN [Suspect]
     Route: 065
     Dates: start: 20100925, end: 20100927
  7. VANCOMYCIN [Suspect]
     Route: 042
     Dates: start: 20100903, end: 20100927
  8. GENTAMICINE [Suspect]
     Route: 042
     Dates: start: 20100903, end: 20100907
  9. GENTAMICINE [Suspect]
     Route: 042
     Dates: start: 20100923, end: 20100925
  10. CIPROFLOXACIN [Suspect]
     Dates: start: 20100923, end: 20100925
  11. AZTREONAM [Suspect]
     Dates: start: 20100917, end: 20100923
  12. CO-TRIMOXAZOLE [Suspect]
     Dates: start: 20100917, end: 20100923

REACTIONS (4)
  - Drug reaction with eosinophilia and systemic symptoms [Recovered/Resolved]
  - Epstein-Barr virus test positive [None]
  - Roseolovirus test positive [None]
  - Roseolovirus test positive [None]
